FAERS Safety Report 24771426 (Version 2)
Quarter: 2025Q1

REPORT INFORMATION
  Report Type: Spontaneous
  Country: CA (occurrence: CA)
  Receive Date: 20241224
  Receipt Date: 20250210
  Transmission Date: 20250408
  Serious: Yes (Death, Hospitalization)
  Sender: SANOFI AVENTIS
  Company Number: CA-SA-2024SA378184

PATIENT
  Age: 28 Year
  Sex: Male

DRUGS (3)
  1. RASBURICASE [Suspect]
     Active Substance: RASBURICASE
     Indication: Renal failure
     Route: 065
  2. CYTARABINE [Suspect]
     Active Substance: CYTARABINE
     Indication: Acute monocytic leukaemia
     Route: 037
  3. HYDROXYUREA [Suspect]
     Active Substance: HYDROXYUREA
     Indication: Acute monocytic leukaemia
     Route: 065

REACTIONS (1)
  - Treatment failure [Fatal]
